FAERS Safety Report 6744619-1 (Version None)
Quarter: 2010Q2

REPORT INFORMATION
  Report Type: 
  Country: None (occurrence: None)
  Receive Date: 20100527
  Receipt Date: 20100514
  Transmission Date: 20101027
  Serious: Yes (Other)
  Sender: FDA-Public Use
  Company Number: US-ELI_LILLY_AND_COMPANY-US201005004650

PATIENT
  Age: 62 Year
  Sex: Female

DRUGS (3)
  1. ALIMTA [Suspect]
     Dosage: 500 MG/M2, UNK
     Route: 042
  2. VITAMIN TAB [Concomitant]
     Indication: VITAMIN SUPPLEMENTATION
  3. I.V. SOLUTIONS [Concomitant]
     Indication: DEHYDRATION
     Dosage: UNK, UNK
     Route: 042
     Dates: start: 20100401, end: 20100401

REACTIONS (3)
  - ANAEMIA [None]
  - DEHYDRATION [None]
  - SUBCUTANEOUS ABSCESS [None]
